FAERS Safety Report 8728609 (Version 3)
Quarter: 2012Q4

REPORT INFORMATION
  Report Type: 
  Country: DE (occurrence: DE)
  Receive Date: 20120817
  Receipt Date: 20121105
  Transmission Date: 20130627
  Serious: Yes (Life-Threatening, Hospitalization)
  Sender: FDA-Public Use
  Company Number: DE-CELGENEUS-062-21880-12081455

PATIENT
  Age: 71 Year
  Sex: Male

DRUGS (5)
  1. REVLIMID [Suspect]
     Indication: HODGKIN^S LYMPHOMA
     Route: 048
     Dates: start: 20120711, end: 20120731
  2. REVLIMID [Suspect]
     Route: 048
  3. ADRIAMYCIN [Suspect]
     Indication: HODGKIN^S LYMPHOMA
     Route: 065
     Dates: start: 20120711, end: 20120730
  4. DACARBAZINE [Suspect]
     Indication: HODGKIN^S LYMPHOMA
     Route: 065
     Dates: start: 20120711, end: 20120730
  5. VINBLASTIN [Suspect]
     Indication: HODGKIN^S LYMPHOMA
     Route: 065
     Dates: start: 20120711, end: 20120730

REACTIONS (4)
  - Hypotension [Not Recovered/Not Resolved]
  - Febrile neutropenia [Recovered/Resolved]
  - Constipation [Not Recovered/Not Resolved]
  - Cardiovascular insufficiency [Recovered/Resolved]
